FAERS Safety Report 9303587 (Version 1)
Quarter: 2013Q2

REPORT INFORMATION
  Report Type: Spontaneous
  Country: GB (occurrence: GB)
  Receive Date: 20130522
  Receipt Date: 20130522
  Transmission Date: 20140414
  Serious: Yes (Hospitalization)
  Sender: FDA-Public Use
  Company Number: PHHY2013GB050649

PATIENT
  Age: 61 Year
  Sex: Female

DRUGS (24)
  1. ZOLEDRONATE [Suspect]
     Indication: OSTEOPOROSIS
     Dosage: 5 MG
     Route: 042
     Dates: start: 20130426, end: 20130426
  2. MABTHERA [Suspect]
     Indication: RHEUMATOID ARTHRITIS
     Dosage: 1000 MG
     Route: 042
     Dates: start: 20130118
  3. PROCHLORPERAZINE [Concomitant]
  4. ZOLPIDEM [Concomitant]
  5. SERETIDE [Concomitant]
  6. CANDESARTAN [Concomitant]
  7. URSODEOXYCHOLIC ACID [Concomitant]
  8. PANTOPRAZOLE [Concomitant]
  9. ATORVASTATIN [Concomitant]
  10. LANTUS [Concomitant]
  11. NOVORAPID [Concomitant]
  12. LEVOTHYROXINE [Concomitant]
  13. VISCOTEARS [Concomitant]
  14. DOSULEPIN [Concomitant]
  15. CYCLIZINE [Concomitant]
  16. PREDNISOLONE [Concomitant]
  17. CALCICHEW D3 [Concomitant]
  18. FUROSEMIDE [Concomitant]
  19. TRAMADOL [Concomitant]
  20. SALBUTAMOL [Concomitant]
  21. PREGABALIN [Concomitant]
  22. CLOPIDOGREL [Concomitant]
  23. MORPHINE SULFATE [Concomitant]
  24. GAVISCON [Concomitant]

REACTIONS (4)
  - Neutropenic sepsis [Recovered/Resolved]
  - Neutropenia [Recovered/Resolved]
  - Pyrexia [Unknown]
  - Headache [Unknown]
